FAERS Safety Report 6646358-4 (Version None)
Quarter: 2010Q1

REPORT INFORMATION
  Report Type: 
  Country: None (occurrence: None)
  Receive Date: 20100322
  Receipt Date: 20100322
  Transmission Date: 20100710
  Serious: Yes (Life-Threatening, Hospitalization, Disabling, Other)
  Sender: FDA-Public Use
  Company Number: None

PATIENT
  Sex: Female
  Weight: 54.4316 kg

DRUGS (2)
  1. FLEXERIL [Suspect]
     Indication: BACK PAIN
     Dosage: 1  4 HRS;  1-2  3HRS
     Dates: start: 19940101, end: 20070101
  2. FLEXERIL [Suspect]
     Indication: NECK PAIN
     Dosage: 1  4 HRS;  1-2  3HRS
     Dates: start: 19940101, end: 20070101

REACTIONS (3)
  - BONE MARROW DISORDER [None]
  - DRUG PRESCRIBING ERROR [None]
  - LEUKAEMIA [None]
